FAERS Safety Report 15355860 (Version 1)
Quarter: 2018Q3

REPORT INFORMATION
  Report Type: Spontaneous
  Country: US (occurrence: US)
  Receive Date: 20180830
  Receipt Date: 20180830
  Transmission Date: 20181010
  Serious: Yes (Life-Threatening, Disabling, Other)
  Sender: FDA-Public Use
  Company Number: None

PATIENT
  Age: 66 Year
  Sex: Male
  Weight: 63 kg

DRUGS (36)
  1. ZEBUTAL [Concomitant]
     Active Substance: ACETAMINOPHEN\BUTALBITAL\CAFFEINE
  2. MEDICAL MARIJUANA (RSO) [Concomitant]
  3. MULTI?VITAMIN [Concomitant]
     Active Substance: .ALPHA.-TOCOPHEROL ACETATE, DL-\ASCORBIC ACID\CYANOCOBALAMIN\FLUORIDE ION\FOLIC ACID\NIACIN\PYRIDOXINE\RIBOFLAVIN\THIAMINE\VITAMIN A\VITAMIN D
  4. ZAFIRLUKAST. [Concomitant]
     Active Substance: ZAFIRLUKAST
  5. AMARYL [Concomitant]
     Active Substance: GLIMEPIRIDE
  6. FLOMAX [Concomitant]
     Active Substance: TAMSULOSIN HYDROCHLORIDE
  7. VITAMIN B COMPLEX [Concomitant]
     Active Substance: CYANOCOBALAMIN\DEXPANTHENOL\NIACINAMIDE\PYRIDOXINE HYDROCHLORIDE\RIBOFLAVIN 5^-PHOSPHATE SODIUM\THIAMINE HYDROCHLORIDE\VITAMIN B COMPLEX
  8. OSTEO BIFLEX [Concomitant]
     Active Substance: CHONDROITIN SULFATE A\GLUCOSAMINE
  9. FOLIC ACID. [Concomitant]
     Active Substance: FOLIC ACID
  10. LIDODERM [Concomitant]
     Active Substance: LIDOCAINE
  11. LOMOTIL [Concomitant]
     Active Substance: ATROPINE SULFATE\DIPHENOXYLATE HYDROCHLORIDE
  12. METFORMIN HCL [Concomitant]
     Active Substance: METFORMIN HYDROCHLORIDE
  13. ONE TOUCH ULTRA CONTROL SOLUTION [Concomitant]
  14. OXYCODONE [Concomitant]
     Active Substance: OXYCODONE
  15. QVAR [Concomitant]
     Active Substance: BECLOMETHASONE DIPROPIONATE
  16. META GENICS CAL APATITE MAGNESIUM [Concomitant]
  17. KETOROLAC [Concomitant]
     Active Substance: KETOROLAC\KETOROLAC TROMETHAMINE
  18. PROZAC [Concomitant]
     Active Substance: FLUOXETINE HYDROCHLORIDE
  19. TRIAMTERENE?HCTZ [Concomitant]
     Active Substance: HYDROCHLOROTHIAZIDE\TRIAMTERENE
  20. WELLBUTRIN SR [Concomitant]
     Active Substance: BUPROPION HYDROCHLORIDE
  21. GILOTRIF [Concomitant]
     Active Substance: AFATINIB
  22. NEXIUM [Concomitant]
     Active Substance: ESOMEPRAZOLE MAGNESIUM
  23. PERFOROMIST [Concomitant]
     Active Substance: FORMOTEROL FUMARATE DIHYDRATE
  24. METOCLOPRAMIDE. [Concomitant]
     Active Substance: METOCLOPRAMIDE
  25. SUSTAINED C [Concomitant]
  26. FISH OIL [Concomitant]
     Active Substance: FISH OIL
  27. VALSARTAN TABLETS USP 320 MG [Suspect]
     Active Substance: VALSARTAN
     Indication: HYPERTENSION
     Dosage: ?          QUANTITY:90 TABLET(S);?
     Route: 048
  28. VERAPAMIL ER [Concomitant]
     Active Substance: VERAPAMIL HYDROCHLORIDE
  29. FIBER [Concomitant]
     Active Substance: PSYLLIUM HUSK
  30. BUDESONIDE. [Concomitant]
     Active Substance: BUDESONIDE
  31. KEPPRA [Concomitant]
     Active Substance: LEVETIRACETAM
  32. SIMVASTATIN. [Concomitant]
     Active Substance: SIMVASTATIN
  33. ABILIFY [Concomitant]
     Active Substance: ARIPIPRAZOLE
  34. COMPAZINE [Concomitant]
     Active Substance: PROCHLORPERAZINE MALEATE
  35. VITAMIN E [Concomitant]
     Active Substance: .ALPHA.-TOCOPHEROL
  36. QUNOL [Concomitant]

REACTIONS (1)
  - Lung adenocarcinoma stage IV [None]

NARRATIVE: CASE EVENT DATE: 20171217
